FAERS Safety Report 17245699 (Version 1)
Quarter: 2020Q1

REPORT INFORMATION
  Report Type: Report from Study
  Country: ES (occurrence: ES)
  Receive Date: 20200108
  Receipt Date: 20200108
  Transmission Date: 20200409
  Serious: Yes (Hospitalization)
  Sender: FDA-Public Use
  Company Number: ES-TEVA-2020-ES-1164057

PATIENT
  Age: 69 Year
  Sex: Female

DRUGS (4)
  1. BISOPROLOL (2328A) [Concomitant]
     Active Substance: BISOPROLOL
     Indication: ATRIAL FIBRILLATION
     Dosage: 2.5 MG PER DAY
     Route: 048
     Dates: start: 20131115
  2. ENALAPRIL + HIDROCLOROTIAZIDA [Concomitant]
     Active Substance: ENALAPRIL MALEATE\HYDROCHLOROTHIAZIDE
     Indication: HYPERTENSION
     Route: 048
     Dates: start: 20161121
  3. IBUPROFENO (1769A) [Suspect]
     Active Substance: IBUPROFEN
     Indication: BACK PAIN
     Dosage: 1.2 G PER DAY
     Route: 048
     Dates: start: 20180519, end: 20180526
  4. ELIQUIS [Interacting]
     Active Substance: APIXABAN
     Indication: ATRIAL FIBRILLATION
     Dosage: 10 MG PER DAY
     Route: 048
     Dates: start: 20180202, end: 20180526

REACTIONS (2)
  - Drug interaction [Unknown]
  - Lower gastrointestinal haemorrhage [Recovered/Resolved]

NARRATIVE: CASE EVENT DATE: 20180526
